FAERS Safety Report 10250811 (Version 1)
Quarter: 2014Q2

REPORT INFORMATION
  Report Type: Other
  Country: US (occurrence: US)
  Receive Date: 20140620
  Receipt Date: 20140620
  Transmission Date: 20141212
  Serious: Yes (Other)
  Sender: FDA-Public Use
  Company Number: US-PURDUE-USA-2014-0114991

PATIENT
  Age: 55 Year
  Sex: Female

DRUGS (1)
  1. OXYCODONE HYDROCHLORIDE (SIMILAR TO NDA 22-272) [Suspect]
     Indication: PROCEDURAL PAIN
     Dosage: TID FOR 2 WEEKS

REACTIONS (1)
  - Sexual dysfunction [Recovered/Resolved]
